FAERS Safety Report 7591897-5 (Version None)
Quarter: 2011Q2

REPORT INFORMATION
  Report Type: 
  Country: None (occurrence: None)
  Receive Date: 20110627
  Receipt Date: 20110613
  Transmission Date: 20111010
  Serious: Yes (Hospitalization, Other)
  Sender: FDA-Public Use
  Company Number: 2011MA007157

PATIENT
  Age: 24 Year
  Sex: Female

DRUGS (2)
  1. VENLAFAXINE HYDROCHLORIDE [Suspect]
     Indication: DEPRESSION
     Dosage: 225 MG;QD;UNK DEPRESSION
  2. LORAZEPAM [Concomitant]

REACTIONS (11)
  - FEELING GUILTY [None]
  - SUICIDAL IDEATION [None]
  - ASTHENIA [None]
  - DISTURBANCE IN ATTENTION [None]
  - MAJOR DEPRESSION [None]
  - CRYING [None]
  - DELUSION [None]
  - LOSS OF LIBIDO [None]
  - REFUSAL OF TREATMENT BY PATIENT [None]
  - DRUG INEFFECTIVE [None]
  - COTARD'S SYNDROME [None]
